FAERS Safety Report 8404147 (Version 3)
Quarter: 2013Q2

REPORT INFORMATION
  Report Type: Spontaneous
  Country: US (occurrence: None)
  Receive Date: 20111227
  Receipt Date: 20120426
  Transmission Date: 20140414
  Serious: No
  Sender: FDA-Public Use
  Company Number: PHHY2011US07182

PATIENT
  Age: 42 Year
  Sex: Female
  Weight: 92.5 kg

DRUGS (10)
  1. GILENYA [Suspect]
     Indication: MULTIPLE SCLEROSIS
     Dosage: 0.5 MG, QD, ORAL
     Route: 048
     Dates: start: 20110119
  2. OMEPRAZOLE [Concomitant]
  3. EFEXOR XR (VENLAFAXINE) [Concomitant]
  4. IBUPROFEN (IBUPROFEN) [Concomitant]
  5. TYLENOL ALLERGY SINUS (CHLORPHENAMINE MALEATE, PARACETAMOL, PSEUDOEPHEDRINE HYDROCHLORIDE) [Concomitant]
  6. BACLOFEN [Concomitant]
  7. SIMVASTATIN [Concomitant]
  8. VITAMIN B12 [Concomitant]
  9. ATENOLOL (ATENOLOL) [Concomitant]
  10. GABAPENTIN (GABAPENTIN) [Concomitant]

REACTIONS (7)
  - MYALGIA [None]
  - ARTHRALGIA [None]
  - FATIGUE [None]
  - MUSCLE SPASMS [None]
  - Fungal infection [None]
  - Pain [None]
  - Hepatic enzyme increased [None]
